FAERS Safety Report 23878926 (Version 1)
Quarter: 2024Q2

REPORT INFORMATION
  Report Type: Spontaneous
  Country: US (occurrence: US)
  Receive Date: 20240521
  Receipt Date: 20240521
  Transmission Date: 20240716
  Serious: No
  Sender: FDA-Public Use
  Company Number: US-HORIZON THERAPEUTICS-HZN-2024-001037

PATIENT

DRUGS (2)
  1. KRYSTEXXA [Suspect]
     Active Substance: PEGLOTICASE
     Indication: Gout
     Dosage: FIRST INFUSION 8 MG IN 250 NS @ 125 ML/HR EVERY 2 WEEKS X 2 DOSES
     Route: 042
     Dates: start: 20230815
  2. KRYSTEXXA [Suspect]
     Active Substance: PEGLOTICASE
     Dosage: LAST INFUSION-8 MG IN 250 NS @ 125 ML/HR EVERY 2 WEEKS X 2 DOSES
     Route: 042
     Dates: start: 20230829

REACTIONS (2)
  - Chest discomfort [Unknown]
  - Folliculitis [Unknown]

NARRATIVE: CASE EVENT DATE: 20230801
